FAERS Safety Report 6823552-0 (Version None)
Quarter: 2010Q3

REPORT INFORMATION
  Report Type: 
  Country: None (occurrence: None)
  Receive Date: 20100708
  Receipt Date: 20100629
  Transmission Date: 20110219
  Serious: Yes (Other)
  Sender: FDA-Public Use
  Company Number: US-AMGEN-QUU404086

PATIENT
  Sex: Female
  Weight: 84.9 kg

DRUGS (4)
  1. ENBREL [Suspect]
     Indication: RHEUMATOID ARTHRITIS
     Route: 058
     Dates: start: 20051230
  2. ATENOLOL [Concomitant]
  3. PROTONIX [Concomitant]
  4. LIPITOR [Concomitant]

REACTIONS (2)
  - DEAFNESS UNILATERAL [None]
  - EUSTACHIAN TUBE DYSFUNCTION [None]
